FAERS Safety Report 13505116 (Version 1)
Quarter: 2017Q2

REPORT INFORMATION
  Report Type: Spontaneous
  Country: US (occurrence: US)
  Receive Date: 20170502
  Receipt Date: 20170502
  Transmission Date: 20170830
  Serious: Yes (Other)
  Sender: FDA-Public Use
  Company Number: US-BAYER-2017-078562

PATIENT
  Sex: Female

DRUGS (1)
  1. MIRENA [Suspect]
     Active Substance: LEVONORGESTREL
     Indication: URINARY TRACT INFECTION
     Dosage: 20 MCG/24HR, CONT
     Route: 015
     Dates: start: 20141214

REACTIONS (10)
  - Abdominal distension [None]
  - Adverse event [None]
  - Abdominal pain upper [None]
  - Off label use [None]
  - Cyst [None]
  - Genital haemorrhage [None]
  - Peripheral swelling [None]
  - Medical device discomfort [None]
  - Back pain [None]
  - Nervousness [None]
